FAERS Safety Report 6504879-9 (Version None)
Quarter: 2009Q4

REPORT INFORMATION
  Report Type: 
  Country: None (occurrence: None)
  Receive Date: 20091218
  Receipt Date: 20091209
  Transmission Date: 20100525
  Serious: Yes (Other)
  Sender: FDA-Public Use
  Company Number: US-ROCHE-666149

PATIENT
  Sex: Male

DRUGS (3)
  1. PEGASYS [Suspect]
     Indication: HEPATITIS C
     Dosage: FORM: PRE-FILLED SYRINGE
     Route: 065
     Dates: start: 20090815
  2. RIBAVIRIN [Suspect]
     Indication: HEPATITIS C
     Dosage: DIVIDED DOSE
     Route: 065
     Dates: start: 20090815
  3. RIBAVIRIN [Suspect]
     Dosage: DIVIDED DOSE, DOSAGE INCREASED
     Route: 065
     Dates: start: 20090925

REACTIONS (1)
  - FACIAL PALSY [None]
